FAERS Safety Report 5706328-7 (Version None)
Quarter: 2008Q2

REPORT INFORMATION
  Report Type: 
  Country: None (occurrence: None)
  Receive Date: 20080411
  Receipt Date: 20080329
  Transmission Date: 20081010
  Serious: Yes (Other)
  Sender: FDA-Public Use
  Company Number: 08-000544

PATIENT
  Age: 17 Year
  Sex: Female

DRUGS (2)
  1. DOVONEX [Suspect]
     Indication: ICHTHYOSIS
     Dosage: 0.005%, BID, TOPICAL
     Route: 061
  2. ACITRETIN [Concomitant]

REACTIONS (8)
  - BLOOD CREATININE INCREASED [None]
  - DIZZINESS [None]
  - FATIGUE [None]
  - HYPERCALCAEMIA [None]
  - MYALGIA [None]
  - NAUSEA [None]
  - VOMITING [None]
  - WEIGHT DECREASED [None]
